FAERS Safety Report 5376049-1 (Version None)
Quarter: 2007Q3

REPORT INFORMATION
  Report Type: 
  Country: None (occurrence: None)
  Receive Date: 20070702
  Receipt Date: 20070622
  Transmission Date: 20080115
  Serious: Yes (Other)
  Sender: FDA-Public Use
  Company Number: IE-AMGEN-US229378

PATIENT
  Sex: Female
  Weight: 63.56 kg

DRUGS (5)
  1. ENBREL [Suspect]
     Indication: DRUG USE FOR UNKNOWN INDICATION
     Dosage: 50 MG FREQUENCY UNKNOWN
     Route: 058
     Dates: start: 20070416
  2. TRAMADOL HCL [Concomitant]
     Indication: RHEUMATOID ARTHRITIS
     Route: 048
  3. ELTROXIN [Concomitant]
     Indication: HYPOTHYROIDISM
     Route: 048
  4. NAPROXEN [Concomitant]
     Indication: RHEUMATOID ARTHRITIS
     Route: 048
  5. MAXOLON [Concomitant]
     Indication: DYSPEPSIA
     Dosage: AS REQUIRED
     Route: 048

REACTIONS (2)
  - CONDITION AGGRAVATED [None]
  - TYPE 1 DIABETES MELLITUS [None]
